FAERS Safety Report 22624011 (Version 2)
Quarter: 2023Q2

REPORT INFORMATION
  Report Type: Report from Study
  Country: US (occurrence: US)
  Receive Date: 20230621
  Receipt Date: 20230622
  Transmission Date: 20230722
  Serious: Yes (Other)
  Sender: FDA-Public Use
  Company Number: US-GLAXOSMITHKLINE-US2023083800

PATIENT

DRUGS (3)
  1. NIRAPARIB [Suspect]
     Active Substance: NIRAPARIB
     Indication: Ovarian cancer
     Dosage: 200 MG, QD
     Dates: start: 202302
  2. NIRAPARIB [Suspect]
     Active Substance: NIRAPARIB
     Dosage: UNK,(200MG QOD ALTERNATING WITH 100MG QOD)
     Route: 048
     Dates: start: 20230608
  3. MVASI [Concomitant]
     Active Substance: BEVACIZUMAB-AWWB
     Indication: Product used for unknown indication
     Dosage: UNK (Q3 WEEKS)

REACTIONS (6)
  - Cellulitis [Recovering/Resolving]
  - Feeling abnormal [Not Recovered/Not Resolved]
  - Arthritis [Recovering/Resolving]
  - Movement disorder [Recovered/Resolved]
  - Frequent bowel movements [Not Recovered/Not Resolved]
  - Product use issue [Unknown]

NARRATIVE: CASE EVENT DATE: 20230608
